FAERS Safety Report 8784800 (Version 1)
Quarter: 2012Q4

REPORT INFORMATION
  Report Type: 
  Country: BR (occurrence: BR)
  Receive Date: 20120914
  Receipt Date: 20120914
  Transmission Date: 20130627
  Serious: Yes (Other)
  Sender: FDA-Public Use
  Company Number: BR-PFIZER INC-2012224156

PATIENT
  Age: 84 Year
  Sex: Female
  Weight: 60 kg

DRUGS (3)
  1. LYRICA [Suspect]
     Indication: LIMB INJURY
     Dosage: UNK
  2. ASPIRINA [Concomitant]
     Indication: BLOOD DISORDER
  3. ATENSINA [Concomitant]
     Indication: BLOOD PRESSURE

REACTIONS (4)
  - Dysstasia [Unknown]
  - Balance disorder [Unknown]
  - Dizziness [Unknown]
  - Feeling abnormal [Unknown]
